FAERS Safety Report 18842887 (Version 1)
Quarter: 2021Q1

REPORT INFORMATION
  Report Type: Spontaneous
  Country: NL (occurrence: NL)
  Receive Date: 20210203
  Receipt Date: 20210203
  Transmission Date: 20210419
  Serious: Yes (Hospitalization)
  Sender: FDA-Public Use
  Company Number: NL-TEVA-2021-NL-1875389

PATIENT
  Sex: Male
  Weight: 107 kg

DRUGS (9)
  1. PREDNISON TABLET 5MG / BRAND NAME NOT SPECIFIED [Suspect]
     Active Substance: PREDNISONE
     Indication: POLYARTHRITIS
     Dosage: 15 MILLIGRAM DAILY; 3 X PER DAY 1 PIECE
     Dates: start: 20190105, end: 20200901
  2. COTRIMOXAZOL 960 TABLET 160/800MG / BRAND NAME NOT SPECIFIED [Concomitant]
     Active Substance: SULFAMETHOXAZOLE\TRIMETHOPRIM
     Dosage: 160/800 MG (MILLIGRAM)THERAPY START DATE:ASKED BUT UNKNOWN:THERAPY END DATE :ASKED BUT UNKNOWN
  3. AMITRIPTYLINE HCL TABLET 10MG / BRAND NAME NOT SPECIFIED [Concomitant]
     Active Substance: AMITRIPTYLINE HYDROCHLORIDE
     Dosage: 10 MG (MILLIGRAM)
  4. PANTOPRAZOL TABLET MSR 20MG / BRAND NAME NOT SPECIFIED [Concomitant]
     Active Substance: PANTOPRAZOLE
     Dosage: 20 MG (MILLIGRAMS)THERAPY START DATE:ASKED BUT UNKNOWN:THERAPY END DATE :ASKED BUT UNKNOWN
  5. BETAMETHASON CREME 0,5MG/G / BRAND NAME NOT SPECIFIED [Concomitant]
     Active Substance: BETAMETHASONE
     Dosage: CREAM, 0.5 MG / G (MILLIGRAMS PER GRAM)THERAPY START DATE:ASKED BUT UNKNOWN:THERAPY END DATE :ASKED
  6. OXYCODON CAPSULE 5MG / BRAND NAME NOT SPECIFIED [Concomitant]
     Active Substance: OXYCODONE
     Dosage: 5 MG (MILLIGRAM)THERAPY START DATE:ASKED BUT UNKNOWN:THERAPY END DATE :ASKED BUT UNKNOWN
  7. ATORVASTATINE TABLET 10MG / BRAND NAME NOT SPECIFIED [Concomitant]
     Active Substance: ATORVASTATIN
     Dosage: 10 MG (MILLIGRAM)THERAPY START DATE:ASKED BUT UNKNOWN:THERAPY END DATE :ASKED BUT UNKNOWN
  8. BARICITINIB TABLET 4MG / BRAND NAME NOT SPECIFIED [Concomitant]
     Active Substance: BARICITINIB
     Dosage: 4 MG (MILLIGRAM)THERAPY START DATE:ASKED BUT UNKNOWN:THERAPY END DATE :ASKED BUT UNKNOWN
  9. ALENDRONINEZUUR TABLET 10MG / BRAND NAME NOT SPECIFIED [Concomitant]
     Active Substance: ALENDRONIC ACID
     Dosage: 10 MG (MILLIGRAM):THERAPY START DATE:ASKED BUT UNKNOWN:THERAPY END DATE :ASKED BUT UNKNOWN

REACTIONS (2)
  - Osteonecrosis [Recovered/Resolved]
  - Osteoarthritis [Recovered/Resolved]
